FAERS Safety Report 22270418 (Version 1)
Quarter: 2023Q2

REPORT INFORMATION
  Report Type: Spontaneous
  Country: US (occurrence: None)
  Receive Date: 20230429
  Receipt Date: 20230429
  Transmission Date: 20230721
  Serious: Yes (Hospitalization, Disabling, Other)
  Sender: FDA-Public Use
  Company Number: None

PATIENT
  Age: 71 Year
  Sex: Female
  Weight: 72 kg

DRUGS (1)
  1. ATORVASTATIN [Suspect]
     Active Substance: ATORVASTATIN
     Indication: Product used for unknown indication
     Dosage: OTHER QUANTITY : 1 TABLET(S);?
     Dates: start: 20220417, end: 20221206

REACTIONS (14)
  - Fatigue [None]
  - Asthenia [None]
  - Pain in extremity [None]
  - Musculoskeletal stiffness [None]
  - Dyspnoea exertional [None]
  - Blood creatine phosphokinase increased [None]
  - Hepatic enzyme increased [None]
  - Dialysis [None]
  - Immune-mediated myositis [None]
  - Glycosylated haemoglobin increased [None]
  - Visual impairment [None]
  - Eye irritation [None]
  - Lung disorder [None]
  - Cardiac disorder [None]

NARRATIVE: CASE EVENT DATE: 20221107
